FAERS Safety Report 6255946-9 (Version None)
Quarter: 2009Q3

REPORT INFORMATION
  Report Type: 
  Country: None (occurrence: None)
  Receive Date: 20090706
  Receipt Date: 20090701
  Transmission Date: 20100115
  Serious: Yes (Other)
  Sender: FDA-Public Use
  Company Number: GB-BRISTOL-MYERS SQUIBB COMPANY-14661508

PATIENT
  Age: 51 Year
  Sex: Male

DRUGS (12)
  1. ETOPOSIDE [Suspect]
     Indication: CHEMOTHERAPY
     Dosage: ALSO TAKEN FROM AUG06
     Route: 065
     Dates: start: 20060301
  2. ETOPOSIDE [Suspect]
     Indication: DIFFUSE LARGE B-CELL LYMPHOMA
     Dosage: ALSO TAKEN FROM AUG06
     Route: 065
     Dates: start: 20060301
  3. CARMUSTINE [Suspect]
     Indication: CHEMOTHERAPY
     Route: 065
     Dates: start: 20060801
  4. IFOSFAMIDE [Suspect]
     Indication: DIFFUSE LARGE B-CELL LYMPHOMA
     Route: 065
     Dates: start: 20060301
  5. CYCLOPHOSPHAMIDE [Suspect]
     Indication: B-CELL LYMPHOMA
     Route: 065
     Dates: start: 20040801
  6. VINCRISTINE [Suspect]
     Indication: B-CELL LYMPHOMA
     Route: 065
     Dates: start: 20040801
  7. CYTARABINE [Suspect]
     Indication: DIFFUSE LARGE B-CELL LYMPHOMA
     Dosage: ALSO TAKEN FROM AUG06
     Route: 065
     Dates: start: 20060301
  8. CYTARABINE [Suspect]
     Indication: CHEMOTHERAPY
     Dosage: ALSO TAKEN FROM AUG06
     Route: 065
     Dates: start: 20060301
  9. MELPHALAN HYDROCHLORIDE [Suspect]
     Indication: CHEMOTHERAPY
     Route: 065
     Dates: start: 20060801
  10. RITUXIMAB [Suspect]
     Indication: B-CELL LYMPHOMA
     Dosage: ALSO TAKEN FROM MAR08
     Route: 065
     Dates: start: 20040801
  11. RITUXIMAB [Suspect]
     Indication: DIFFUSE LARGE B-CELL LYMPHOMA
     Dosage: ALSO TAKEN FROM MAR08
     Route: 065
     Dates: start: 20040801
  12. PREDNISOLONE [Suspect]
     Indication: B-CELL LYMPHOMA
     Route: 065
     Dates: start: 20040801

REACTIONS (3)
  - CYTOMEGALOVIRUS ENTEROCOLITIS [None]
  - GASTROINTESTINAL INFLAMMATION [None]
  - MALIGNANT NEOPLASM PROGRESSION [None]
